FAERS Safety Report 6411217-9 (Version None)
Quarter: 2009Q4

REPORT INFORMATION
  Report Type: 
  Country: None (occurrence: None)
  Receive Date: 20091020
  Receipt Date: 20091006
  Transmission Date: 20100525
  Serious: Yes (Death, Other)
  Sender: FDA-Public Use
  Company Number: A-US2009-25847

PATIENT
  Age: 65 Year
  Sex: Female

DRUGS (7)
  1. TRACLEER [Suspect]
     Indication: PULMONARY ARTERIAL HYPERTENSION
     Dosage: 125 MG, BID, ORAL; 62.5 MG, BID, ORAL
     Route: 048
     Dates: start: 20090517, end: 20090524
  2. TRACLEER [Suspect]
     Indication: PULMONARY ARTERIAL HYPERTENSION
     Dosage: 125 MG, BID, ORAL; 62.5 MG, BID, ORAL
     Route: 048
     Dates: start: 20090525, end: 20090603
  3. ADALAT [Concomitant]
  4. NITRO-DUR [Concomitant]
  5. FUROSEMIDE [Concomitant]
  6. ASPIRIN [Concomitant]
  7. EXTRA STRENGTH TYLENOL [Concomitant]

REACTIONS (13)
  - CARDIAC FAILURE [None]
  - DECREASED APPETITE [None]
  - DISEASE PROGRESSION [None]
  - HEADACHE [None]
  - HEPATIC CIRRHOSIS [None]
  - HEPATITIS [None]
  - MYOCARDIAL ISCHAEMIA [None]
  - NAUSEA [None]
  - PNEUMONIA [None]
  - PULMONARY EMBOLISM [None]
  - PULMONARY FIBROSIS [None]
  - PULMONARY HYPERTENSION [None]
  - SCLERODERMA [None]
